FAERS Safety Report 9528603 (Version 5)
Quarter: 2013Q4

REPORT INFORMATION
  Report Type: Spontaneous
  Country: US (occurrence: US)
  Receive Date: 20130917
  Receipt Date: 20131121
  Transmission Date: 20140711
  Serious: Yes (Hospitalization, Other)
  Sender: FDA-Public Use
  Company Number: US-009507513-1110USA01108

PATIENT
  Sex: Female
  Weight: 95.69 kg

DRUGS (8)
  1. FOSAMAX [Suspect]
     Indication: OSTEOPENIA
     Dosage: 70 MG, UNK
     Route: 048
     Dates: start: 2003, end: 2010
  2. FOSAMAX [Suspect]
     Dosage: 35 MG, QD
     Route: 048
     Dates: start: 2004, end: 20061016
  3. FOSAMAX PLUS D [Suspect]
     Indication: OSTEOPENIA
     Dosage: 70 MG/2800 IU WEEKLY
     Route: 048
     Dates: start: 20061016, end: 2010
  4. ALENDRONATE SODIUM [Suspect]
     Dosage: 70 MG, UNK
  5. JANUVIA [Concomitant]
     Indication: DIABETES MELLITUS
     Route: 048
  6. GLUCOTROL [Concomitant]
     Indication: DIABETES MELLITUS
  7. INSULIN [Concomitant]
     Indication: DIABETES MELLITUS
  8. LEVOTHYROXINE SODIUM [Concomitant]
     Indication: HYPOTHYROIDISM

REACTIONS (25)
  - Femur fracture [Recovered/Resolved]
  - Intramedullary rod insertion [Unknown]
  - Postoperative wound infection [Unknown]
  - Impaired healing [Unknown]
  - Blood urea increased [Unknown]
  - Blood creatinine increased [Unknown]
  - Cartilage injury [Unknown]
  - Cataract operation [Unknown]
  - Arthritis [Unknown]
  - Dyspnoea [Unknown]
  - Arthroscopy [Unknown]
  - Osteoporosis [Unknown]
  - Hypertension [Unknown]
  - Glaucoma [Unknown]
  - Hiatus hernia [Unknown]
  - Chronic obstructive pulmonary disease [Not Recovered/Not Resolved]
  - Gout [Unknown]
  - Wound infection staphylococcal [Unknown]
  - Device failure [Unknown]
  - Wound infection pseudomonas [Unknown]
  - Urinary tract infection [Recovered/Resolved]
  - Limb asymmetry [Unknown]
  - Arthralgia [Not Recovered/Not Resolved]
  - Gastrooesophageal reflux disease [Unknown]
  - Back pain [Unknown]
